FAERS Safety Report 9848636 (Version 1)
Quarter: 2013Q4

REPORT INFORMATION
  Report Type: Spontaneous
  Country: US (occurrence: None)
  Receive Date: 20131224
  Receipt Date: 20131224
  Transmission Date: 20140711
  Serious: Yes (Other)
  Sender: FDA-Public Use
  Company Number: PHEH2013US002591

PATIENT
  Age: 65 Year
  Sex: Female

DRUGS (10)
  1. FEMARA [Suspect]
     Dosage: UNK UKN, UNK
  2. CALTRATE (CALCIUM CARBONATE) [Concomitant]
  3. GLYBURIDE (GLIBENCLAMIDE) [Concomitant]
  4. LEVOTHYROXINE SODIUM (LEVOTHYROXINE SODIUM) [Concomitant]
  5. MULTIVITAMIN /00097801/ (ASCORBIC ACID, CALCIUM PANTOTHENATE, ERGOCACIFEROL,NICOTINAMIDE, PYRIDOXINE HYDROCHLORIDE, RETINOL, RIBOFLAVIN, THIAMINE HYDROCHLORIDE) [Concomitant]
  6. VITAMIN B6 (PYRIDOXINE HYDROCHLORIDE) [Concomitant]
  7. ACYCLOVIR (ACICLOVIR) (ACICLOVIR) [Concomitant]
  8. EXEMESTANE (EXEMESTANE) [Concomitant]
  9. PROCHLORPEZAZINE MALEATE (PROCHLORPERAZINE MALEATE) [Concomitant]
  10. XGEVA (DENOSUMAB) [Concomitant]

REACTIONS (2)
  - Malignant neoplasm progression [None]
  - Metastases to bone [None]
